FAERS Safety Report 12744727 (Version 1)
Quarter: 2016Q3

REPORT INFORMATION
  Report Type: Report from Study
  Country: NL (occurrence: NL)
  Receive Date: 20160915
  Receipt Date: 20160915
  Transmission Date: 20161109
  Serious: Yes (Hospitalization, Other)
  Sender: FDA-Public Use
  Company Number: NL-AMGEN-NLDSL2016121685

PATIENT
  Age: 83 Year
  Sex: Female

DRUGS (15)
  1. XGEVA [Suspect]
     Active Substance: DENOSUMAB
     Indication: PRODUCT USED FOR UNKNOWN INDICATION
     Dosage: 120 MG, Q4WK
     Route: 058
     Dates: start: 20141126
  2. ISOSORBIDE MONONITRATE. [Concomitant]
     Active Substance: ISOSORBIDE MONONITRATE
     Dosage: 25 MG, QD
     Dates: start: 20160904
  3. CALCIUM CARBONATE W/COLECALCIFEROL [Concomitant]
     Active Substance: CALCIUM CARBONATE\CHOLECALCIFEROL
     Dosage: 500 MG, QD
     Dates: start: 20160830
  4. FUROSEMIDE. [Concomitant]
     Active Substance: FUROSEMIDE
     Dosage: 40 MG, QD
     Dates: start: 20160809
  5. ANASTROZOL ACCORD [Concomitant]
     Dosage: UNK UNK, QD
     Dates: start: 20160816
  6. AMOXICILLINE/CLAVULAANZUUR [Concomitant]
     Active Substance: AMOXICILLIN\CLAVULANATE POTASSIUM
     Dosage: 500/125 MG, QD
     Dates: start: 20160902
  7. PREDNISOLON [Concomitant]
     Active Substance: PREDNISOLONE
     Dosage: 5 MG, QD
     Dates: start: 20160809
  8. DIGOXINE [Concomitant]
     Active Substance: DIGOXIN
     Dosage: 62.5 MUG, QD
     Dates: start: 20160902
  9. OMEPRAZOL [Concomitant]
     Active Substance: OMEPRAZOLE
     Dosage: 20 MG, QD
     Route: 048
     Dates: start: 20150809
  10. METOPROLOL. [Concomitant]
     Active Substance: METOPROLOL
     Dosage: 100 MG, QD
     Dates: start: 20160809
  11. METFORMINE [Concomitant]
     Active Substance: METFORMIN HYDROCHLORIDE
     Dosage: 500 MG, QD
     Dates: start: 20150809
  12. OXAZEPAM. [Concomitant]
     Active Substance: OXAZEPAM
     Dosage: 10 MG, QD
     Dates: start: 20160903
  13. FENTANYL. [Concomitant]
     Active Substance: FENTANYL
     Dosage: 50 MUG, UNK
     Dates: start: 20160829
  14. NITROFURANTOINE [Concomitant]
     Dosage: 100 MG, QD
     Dates: start: 20160818
  15. ANASTROZOL [Concomitant]
     Active Substance: ANASTROZOLE
     Dosage: 1 MG, QD
     Dates: start: 20160503

REACTIONS (4)
  - Hypokalaemia [Unknown]
  - Pyrexia [Unknown]
  - Dyspnoea [Unknown]
  - Atrial fibrillation [Unknown]

NARRATIVE: CASE EVENT DATE: 20160418
